FAERS Safety Report 9791326 (Version 2)
Quarter: 2014Q1

REPORT INFORMATION
  Report Type: Spontaneous
  Country: FR (occurrence: FR)
  Receive Date: 20140101
  Receipt Date: 20140115
  Transmission Date: 20141002
  Serious: Yes (Other)
  Sender: FDA-Public Use
  Company Number: FR-AMGEN-FRASP2013090922

PATIENT
  Age: 71 Year
  Sex: Male

DRUGS (1)
  1. NPLATE [Suspect]
     Indication: IMMUNE THROMBOCYTOPENIC PURPURA
     Dosage: 300 MUG, QWK
     Route: 065

REACTIONS (2)
  - Clonus [Recovered/Resolved]
  - Muscle twitching [Not Recovered/Not Resolved]
